FAERS Safety Report 4828468-7 (Version None)
Quarter: 2005Q4

REPORT INFORMATION
  Report Type: 
  Country: None (occurrence: None)
  Receive Date: 20051110
  Receipt Date: 20051025
  Transmission Date: 20060501
  Serious: Yes (Life-Threatening)
  Sender: FDA-Public Use
  Company Number: 107926ISR

PATIENT
  Age: 67 Year
  Sex: Male

DRUGS (5)
  1. VINCRISTINE [Suspect]
     Indication: NON-HODGKIN'S LYMPHOMA
     Dosage: ORAL
     Route: 048
     Dates: start: 20050723, end: 20050905
  2. DOXORUBICIN HCL [Suspect]
     Indication: NON-HODGKIN'S LYMPHOMA
     Dosage: 258 MILLIGRAM INTRAVENOUS (NOS)
     Route: 042
     Dates: start: 20050723, end: 20050905
  3. CYCLOPHOSPHAMIDE [Suspect]
     Dosage: INTRAVENOUS (NOS)
     Route: 042
     Dates: start: 20050723, end: 20050905
  4. MABTHERA (RITUXIMAB) [Suspect]
     Dosage: INTRAVENOUS (NOS)
     Route: 042
     Dates: start: 20050723, end: 20050905
  5. PREDNISONE [Concomitant]

REACTIONS (7)
  - BRONCHIAL OBSTRUCTION [None]
  - BRONCHIECTASIS [None]
  - DYSPNOEA EXERTIONAL [None]
  - EMPHYSEMA [None]
  - INTERSTITIAL LUNG DISEASE [None]
  - PNEUMONIA CHLAMYDIAL [None]
  - PULMONARY FIBROSIS [None]
